FAERS Safety Report 7342658-3 (Version None)
Quarter: 2011Q1

REPORT INFORMATION
  Report Type: 
  Country: None (occurrence: None)
  Receive Date: 20110310
  Receipt Date: 20110209
  Transmission Date: 20110831
  Serious: Yes (Hospitalization, Other)
  Sender: FDA-Public Use
  Company Number: US-BAYER-201038331NA

PATIENT
  Sex: Female
  Weight: 120.18 kg

DRUGS (16)
  1. ADVAIR DISKUS 100/50 [Concomitant]
     Indication: ACNE
  2. TRAZODONE HCL [Concomitant]
     Dosage: 150 MG, QD
     Route: 048
  3. DOXYCYCLINE [Concomitant]
  4. AMOXICILLIN [Concomitant]
     Dosage: 500 MG, UNK
     Route: 048
  5. OCELLA [Suspect]
     Indication: ACNE
  6. ZEGERID [Concomitant]
  7. ACETAMINOPHEN [Concomitant]
  8. YASMIN [Suspect]
     Indication: ACNE
     Dosage: UNK UNK, QD
     Route: 048
     Dates: start: 20060101, end: 20070101
  9. FLEXERIL [Concomitant]
     Dosage: 10 MG, QD
     Route: 048
  10. ALBUTEROL [Concomitant]
     Dosage: 0.09 MG, UNK
  11. YAZ [Suspect]
     Indication: ACNE
     Dosage: UNK UNK, QD
     Route: 048
  12. CHLORAL HYDRATE [Concomitant]
  13. YASMIN [Suspect]
     Indication: MENSTRUAL CYCLE MANAGEMENT
     Dosage: UNK
     Dates: start: 20040524, end: 20040531
  14. AMBIEN [Concomitant]
     Dosage: 10 MG, QD
     Route: 048
  15. CYMBALTA [Concomitant]
  16. METHYLPREDNISOLONE [Concomitant]
     Dosage: 4 MG, UNK
     Route: 048
     Dates: end: 20070705

REACTIONS (5)
  - NAUSEA [None]
  - BLOOD PRESSURE INCREASED [None]
  - TRANSIENT ISCHAEMIC ATTACK [None]
  - CEREBRAL INFARCTION [None]
  - HYPOAESTHESIA [None]
